FAERS Safety Report 15732529 (Version 2)
Quarter: 2018Q4

REPORT INFORMATION
  Report Type: Spontaneous
  Country: US (occurrence: US)
  Receive Date: 20181217
  Receipt Date: 20181217
  Transmission Date: 20190205
  Serious: Yes (Hospitalization)
  Sender: FDA-Public Use
  Company Number: US-VIFOR (INTERNATIONAL) INC.-VIT-2018-10895

PATIENT
  Sex: Female

DRUGS (14)
  1. ATORVASTATIN CALCIUM. [Concomitant]
     Active Substance: ATORVASTATIN CALCIUM
  2. CHOLECALCIFEROL [Concomitant]
     Active Substance: CHOLECALCIFEROL
  3. NOVOLOG MIX 70/30 [Concomitant]
     Active Substance: INSULIN ASPART
     Dosage: 70/30
  4. VELTASSA [Suspect]
     Active Substance: PATIROMER
     Indication: HYPERKALAEMIA
     Route: 065
  5. GABAPENTIN. [Concomitant]
     Active Substance: GABAPENTIN
  6. LANTUS [Concomitant]
     Active Substance: INSULIN GLARGINE
  7. LORAZEPAM. [Concomitant]
     Active Substance: LORAZEPAM
  8. ADVAIR HFA [Concomitant]
     Active Substance: FLUTICASONE PROPIONATE\SALMETEROL XINAFOATE
  9. MIRALAX [Concomitant]
     Active Substance: POLYETHYLENE GLYCOL 3350
  10. NORVASC [Concomitant]
     Active Substance: AMLODIPINE BESYLATE
  11. LEXAPRO [Concomitant]
     Active Substance: ESCITALOPRAM OXALATE
  12. ASPIRIN 81 [Concomitant]
     Active Substance: ASPIRIN
  13. KAYEXALATE [Concomitant]
     Active Substance: SODIUM POLYSTYRENE SULFONATE
  14. MELATONIN [Concomitant]
     Active Substance: MELATONIN

REACTIONS (1)
  - Hospitalisation [Unknown]
